FAERS Safety Report 17256298 (Version 1)
Quarter: 2020Q1

REPORT INFORMATION
  Report Type: Spontaneous
  Country: CA (occurrence: CA)
  Receive Date: 20200110
  Receipt Date: 20200110
  Transmission Date: 20200409
  Serious: Yes (Hospitalization, Other)
  Sender: FDA-Public Use
  Company Number: CA-EUSA PHARMA (UK) LIMITED-2019CA000001

PATIENT

DRUGS (3)
  1. SYLVANT [Suspect]
     Active Substance: SILTUXIMAB
     Indication: CASTLEMAN^S DISEASE
     Dosage: 11 MG/KG, EVERY 3 WEEKS
     Route: 042
     Dates: start: 201901
  2. SYLVANT [Suspect]
     Active Substance: SILTUXIMAB
     Dosage: 11 MG/KG, EVERY 3 WEEKS
     Route: 042
     Dates: start: 201903, end: 201903
  3. SYLVANT [Suspect]
     Active Substance: SILTUXIMAB
     Indication: POEMS SYNDROME
     Dosage: 11 MG/KG, EVERY 3 WEEKS
     Route: 042
     Dates: start: 201902

REACTIONS (1)
  - Hypertensive crisis [Recovered/Resolved]
